FAERS Safety Report 9835958 (Version 2)
Quarter: 2014Q1

REPORT INFORMATION
  Report Type: Report from Study
  Country: JP (occurrence: JP)
  Receive Date: 20140122
  Receipt Date: 20140310
  Transmission Date: 20141002
  Serious: Yes (Other)
  Sender: FDA-Public Use
  Company Number: JP-UCBSA-109545

PATIENT
  Age: 65 Year
  Sex: Female

DRUGS (13)
  1. CIMZIA [Suspect]
     Indication: RHEUMATOID ARTHRITIS
     Dosage: 200 MG SYRINGE
     Route: 058
     Dates: start: 20130611, end: 20130611
  2. LENDORMIN [Concomitant]
     Route: 048
  3. JUVELA N [Concomitant]
     Route: 048
  4. SELBEX [Concomitant]
     Route: 046
  5. BACTRAMIN [Concomitant]
     Route: 048
  6. NEXIUM [Concomitant]
     Route: 048
  7. PREDONINE [Concomitant]
     Route: 048
     Dates: end: 20130729
  8. PREDONINE [Concomitant]
     Route: 046
     Dates: start: 20130730, end: 20130802
  9. PREDONINE [Concomitant]
     Route: 048
     Dates: start: 20130803
  10. BLOPRESS [Concomitant]
     Route: 046
  11. FOLIAMIN [Concomitant]
     Route: 048
  12. VOLTAREN [Concomitant]
     Route: 054
  13. HYPEN [Concomitant]
     Route: 048

REACTIONS (1)
  - Interstitial lung disease [Recovered/Resolved]
